FAERS Safety Report 23992296 (Version 1)
Quarter: 2024Q2

REPORT INFORMATION
  Report Type: Spontaneous
  Country: JP (occurrence: JP)
  Receive Date: 20240620
  Receipt Date: 20240620
  Transmission Date: 20240716
  Serious: Yes (Death)
  Sender: FDA-Public Use
  Company Number: JP-HALEON-2181175

PATIENT
  Age: 4 Decade
  Sex: Female
  Weight: 57.2 kg

DRUGS (10)
  1. DEXTROMETHORPHAN [Suspect]
     Active Substance: DEXTROMETHORPHAN
     Indication: Product used for unknown indication
     Dosage: TIME INTERVAL: AS NECESSARY
  2. KETOPROFEN [Concomitant]
     Active Substance: KETOPROFEN
  3. TRANEXAMIC ACID [Concomitant]
     Active Substance: TRANEXAMIC ACID
  4. PROPRANOLOL [Concomitant]
     Active Substance: PROPRANOLOL HYDROCHLORIDE
  5. CHLORPHENESIN [Concomitant]
     Active Substance: CHLORPHENESIN
  6. NITRAZEPAM [Concomitant]
     Active Substance: NITRAZEPAM
  7. ACETYLPHENETURIDE [Concomitant]
     Active Substance: ACETYLPHENETURIDE
  8. MIRTAZAPINE [Concomitant]
     Active Substance: MIRTAZAPINE
  9. FLUNITRAZEPAM [Concomitant]
     Active Substance: FLUNITRAZEPAM
  10. ALPRAZOLAM [Concomitant]
     Active Substance: ALPRAZOLAM

REACTIONS (2)
  - Overdose [Fatal]
  - Toxicity to various agents [Fatal]
